FAERS Safety Report 10067719 (Version 4)
Quarter: 2014Q3

REPORT INFORMATION
  Report Type: Spontaneous
  Country: US (occurrence: None)
  Receive Date: 20140407
  Receipt Date: 20140722
  Transmission Date: 20150326
  Serious: Yes (Hospitalization)
  Sender: FDA-Public Use
  Company Number: UTC-045933

PATIENT
  Age: 84 Year
  Sex: Male
  Weight: 69.4 kg

DRUGS (4)
  1. REMODULIN [Suspect]
     Active Substance: TREPROSTINIL
     Indication: PULMONARY ARTERIAL HYPERTENSION
     Dosage: 0.172 UG/KG, CONTINUING, IV DRIP
     Route: 041
     Dates: start: 20060331
  2. WARFARIN (WARFARIN) UNKNOWN [Concomitant]
  3. REVATIO (SILDENAFIL CITRATE) UNKNOWN [Concomitant]
  4. TRACLEER (BOSENTAN) UNKNOWN [Concomitant]

REACTIONS (2)
  - Dyspnoea [None]
  - Pulmonary hypertension [None]

NARRATIVE: CASE EVENT DATE: 20140306
